FAERS Safety Report 12934094 (Version 3)
Quarter: 2016Q4

REPORT INFORMATION
  Report Type: Spontaneous
  Country: LV (occurrence: LV)
  Receive Date: 20161111
  Receipt Date: 20161118
  Transmission Date: 20170207
  Serious: Yes (Hospitalization, Other)
  Sender: FDA-Public Use
  Company Number: LV-ABBVIE-16P-287-1772268-00

PATIENT
  Age: 60 Year
  Sex: Female

DRUGS (13)
  1. EXVIERA [Suspect]
     Active Substance: DASABUVIR
     Indication: HEPATITIS C
     Route: 048
     Dates: start: 20160426, end: 20160712
  2. AMITRIPTYLINI [Concomitant]
     Indication: PRODUCT USED FOR UNKNOWN INDICATION
     Dates: start: 201605
  3. IPIDACRINI [Concomitant]
     Indication: PRODUCT USED FOR UNKNOWN INDICATION
     Dates: start: 201512
  4. GABAPENTINI [Concomitant]
     Indication: PRODUCT USED FOR UNKNOWN INDICATION
     Dates: start: 201605
  5. MELDONII [Concomitant]
     Indication: PRODUCT USED FOR UNKNOWN INDICATION
     Dates: start: 201512
  6. VIEKIRAX [Suspect]
     Active Substance: OMBITASVIR\PARITAPREVIR\RITONAVIR
     Indication: HEPATITIS C
     Route: 048
     Dates: start: 20160426, end: 20160712
  7. RIBAVIRIN. [Suspect]
     Active Substance: RIBAVIRIN
     Indication: HEPATITIS C
     Route: 048
     Dates: start: 20150909, end: 20151124
  8. PEGINF [Concomitant]
     Indication: PRODUCT USED FOR UNKNOWN INDICATION
     Dates: start: 20150909, end: 20151124
  9. NIMESULID [Concomitant]
     Active Substance: NIMESULIDE
     Indication: PRODUCT USED FOR UNKNOWN INDICATION
     Dates: start: 201512
  10. METHYLPREDNISOLONI [Concomitant]
     Indication: PRODUCT USED FOR UNKNOWN INDICATION
     Dates: start: 201512
  11. LACTULOSE. [Concomitant]
     Active Substance: LACTULOSE
     Indication: PRODUCT USED FOR UNKNOWN INDICATION
     Dates: start: 201601
  12. PREDNISOLONE. [Concomitant]
     Active Substance: PREDNISOLONE
     Indication: PRODUCT USED FOR UNKNOWN INDICATION
     Route: 048
     Dates: start: 201605
  13. AZATHIOPRINE. [Concomitant]
     Active Substance: AZATHIOPRINE
     Indication: PRODUCT USED FOR UNKNOWN INDICATION
     Dates: start: 201605

REACTIONS (23)
  - Limb injury [Unknown]
  - Chronic hepatitis C [Unknown]
  - Petechiae [Unknown]
  - Vomiting [Unknown]
  - Pain [Unknown]
  - Pyrexia [Unknown]
  - Diarrhoea [Unknown]
  - Pain [Unknown]
  - Jaundice [Unknown]
  - Petechiae [Unknown]
  - Hepatic encephalopathy [Unknown]
  - Drug-induced liver injury [Unknown]
  - Decreased appetite [Not Recovered/Not Resolved]
  - Polyneuropathy [Unknown]
  - Drug ineffective [Unknown]
  - Hepatomegaly [Unknown]
  - Polyneuropathy [Unknown]
  - Asthenia [Unknown]
  - Vasculitis [Unknown]
  - Hospitalisation [Unknown]
  - Nausea [Unknown]
  - Neutropenia [Unknown]
  - Cryoglobulinaemia [Unknown]

NARRATIVE: CASE EVENT DATE: 2015
